FAERS Safety Report 12698808 (Version 1)
Quarter: 2016Q3

REPORT INFORMATION
  Report Type: Spontaneous
  Country: US (occurrence: US)
  Receive Date: 20160830
  Receipt Date: 20160830
  Transmission Date: 20161109
  Serious: No
  Sender: FDA-Public Use
  Company Number: GXBR2016US001928

PATIENT
  Sex: Female

DRUGS (1)
  1. OXISTAT [Suspect]
     Active Substance: OXICONAZOLE NITRATE
     Indication: PRODUCT USED FOR UNKNOWN INDICATION
     Dosage: 1 DF, ONCE/SINGLE
     Route: 047

REACTIONS (2)
  - Eye irritation [Not Recovered/Not Resolved]
  - Exposure via eye contact [Recovered/Resolved]

NARRATIVE: CASE EVENT DATE: 20160520
